FAERS Safety Report 9128626 (Version 1)
Quarter: 2013Q1

REPORT INFORMATION
  Report Type: Spontaneous
  Country: US (occurrence: US)
  Receive Date: 20130228
  Receipt Date: 20130228
  Transmission Date: 20140127
  Serious: Yes (Other)
  Sender: FDA-Public Use
  Company Number: US-MYLANLABS-2012S1017228

PATIENT
  Age: 20 Year
  Sex: Male

DRUGS (3)
  1. DIVALPROEX SODIUM EXTENDED RELEASE [Suspect]
     Indication: CONVULSION
     Dosage: 500MG QAM, 250MG HS
     Route: 048
     Dates: start: 200903, end: 200907
  2. DIVALPROEX SODIUM ER [Suspect]
     Indication: CONVULSION
     Dosage: 500MG QAM, 250MG HS
     Route: 048
     Dates: start: 200909, end: 200910
  3. RISPERDAL [Concomitant]

REACTIONS (2)
  - Drug effect decreased [Recovered/Resolved]
  - Convulsion [Recovered/Resolved]
